FAERS Safety Report 7484923-5 (Version None)
Quarter: 2011Q2

REPORT INFORMATION
  Report Type: 
  Country: None (occurrence: None)
  Receive Date: 20110517
  Receipt Date: 20110510
  Transmission Date: 20111010
  Serious: Yes (Other)
  Sender: FDA-Public Use
  Company Number: B0718860A

PATIENT

DRUGS (1)
  1. SERETIDE [Suspect]
     Route: 055

REACTIONS (5)
  - VASCULAR OCCLUSION [None]
  - VASCULITIS [None]
  - THROMBOSIS [None]
  - COLITIS ISCHAEMIC [None]
  - MESENTERIC PANNICULITIS [None]
